FAERS Safety Report 9932820 (Version 1)
Quarter: 2014Q1

REPORT INFORMATION
  Report Type: Spontaneous
  Country: GB (occurrence: None)
  Receive Date: 20140226
  Receipt Date: 20140226
  Transmission Date: 20141002
  Serious: Yes (Other)
  Sender: FDA-Public Use
  Company Number: AUR-APL-2014-02153

PATIENT
  Sex: Female

DRUGS (6)
  1. PAROXETINE [Suspect]
     Indication: PRODUCT USED FOR UNKNOWN INDICATION
     Dosage: (40 MG, 1 IN 1 D), UNKNOWN
     Dates: end: 201305
  2. AMITRIPTYLINE (AMITRIPTYLINE) [Concomitant]
  3. DIAZEPAM (DIAZEPAM) [Concomitant]
  4. DIHYDROCODEINE (DIHYDROCODEINE) [Concomitant]
  5. FLUOXETINE (FLUOXETINE) [Concomitant]
  6. TRAMADOL (TRAMADOL) [Concomitant]

REACTIONS (2)
  - Unintended pregnancy [None]
  - Maternal exposure during pregnancy [None]
